FAERS Safety Report 23776741 (Version 1)
Quarter: 2024Q2

REPORT INFORMATION
  Report Type: Report from Study
  Country: US (occurrence: US)
  Receive Date: 20240424
  Receipt Date: 20240424
  Transmission Date: 20240716
  Serious: Yes (Other)
  Sender: FDA-Public Use
  Company Number: US-AUROBINDO-AUR-APL-2024-017822

PATIENT
  Age: 65 Year
  Sex: Male

DRUGS (1)
  1. METHYLPREDNISOLONE [Suspect]
     Active Substance: METHYLPREDNISOLONE
     Indication: Immune effector cell-associated neurotoxicity syndrome
     Dosage: 500 MILLIGRAM, TWO TIMES A DAY
     Route: 042

REACTIONS (1)
  - Drug ineffective [Unknown]
